FAERS Safety Report 6717601-8 (Version None)
Quarter: 2010Q2

REPORT INFORMATION
  Report Type: 
  Country: None (occurrence: None)
  Receive Date: 20100507
  Receipt Date: 20100507
  Transmission Date: 20101027
  Serious: Yes (Other)
  Sender: FDA-Public Use
  Company Number: None

PATIENT
  Age: 63 Year
  Sex: Male
  Weight: 140 kg

DRUGS (1)
  1. PHOTOFRIN [Suspect]
     Indication: LUNG NEOPLASM MALIGNANT
     Dosage: 2 MG/KG 1 DOSE IV BOLUS
     Route: 040
     Dates: start: 20090619, end: 20090619

REACTIONS (1)
  - SUNBURN [None]
